FAERS Safety Report 5614010-X (Version None)
Quarter: 2008Q1

REPORT INFORMATION
  Report Type: 
  Country: None (occurrence: None)
  Receive Date: 20080129
  Receipt Date: 20080122
  Transmission Date: 20080703
  Serious: Yes (Other)
  Sender: FDA-Public Use
  Company Number: THQ2008A00224

PATIENT
  Age: 62 Year
  Sex: Female

DRUGS (4)
  1. ZOTON FASTAB (LANSOPRAZOLE) (TABLETS) [Suspect]
     Dosage: 30 MG (30 MG, 1 IN 1 D) PER ORAL
     Route: 048
     Dates: start: 20070401
  2. OMEPRAZOLE [Suspect]
     Indication: REFLUX OESOPHAGITIS
     Dates: start: 20000101
  3. ASPIRIN [Concomitant]
  4. TEMAZEPAM [Concomitant]

REACTIONS (2)
  - CONDITION AGGRAVATED [None]
  - CUTANEOUS LUPUS ERYTHEMATOSUS [None]
